FAERS Safety Report 16033208 (Version 1)
Quarter: 2019Q1

REPORT INFORMATION
  Report Type: Spontaneous
  Country: NL (occurrence: NL)
  Receive Date: 20190305
  Receipt Date: 20190305
  Transmission Date: 20190418
  Serious: Yes (Other)
  Sender: FDA-Public Use
  Company Number: NL-TEVA-2019-NL-1018198

PATIENT
  Age: 62 Year
  Sex: Male
  Weight: 105 kg

DRUGS (4)
  1. LOSARTAN FILMOMHULDE TABLET, 50 MG (MILLIGRAM) [Suspect]
     Active Substance: LOSARTAN
     Indication: PRODUCT USED FOR UNKNOWN INDICATION
     Dosage: 2 X PER DAY
     Route: 065
     Dates: start: 20180901, end: 20190114
  2. CARBASALAATCALCIUM POEDER 100MG [Concomitant]
     Dosage: 100 MILLIGRAM DAILY; 1 X DAY 1 BAG
  3. SOTALOL TABLET 80MG [Concomitant]
     Dosage: 2 X DAY 1 TABLET
     Route: 065
  4. NIFEDIPINE TABLET MGA 30MG [Concomitant]
     Active Substance: NIFEDIPINE
     Dosage: 30 MILLIGRAM DAILY; 1 X DAAGS 1 TABLET

REACTIONS (4)
  - Arrhythmia [Not Recovered/Not Resolved]
  - Condition aggravated [Not Recovered/Not Resolved]
  - Fatigue [Not Recovered/Not Resolved]
  - Erectile dysfunction [Not Recovered/Not Resolved]

NARRATIVE: CASE EVENT DATE: 20180916
